FAERS Safety Report 7659272-2 (Version None)
Quarter: 2011Q3

REPORT INFORMATION
  Report Type: 
  Country: None (occurrence: None)
  Receive Date: 20110805
  Receipt Date: 20110802
  Transmission Date: 20111222
  Serious: Yes (Hospitalization)
  Sender: FDA-Public Use
  Company Number: IT-ABBOTT-11P-083-0839139-00

PATIENT
  Sex: Male

DRUGS (8)
  1. REPAGLINIDE [Concomitant]
     Indication: PRODUCT USED FOR UNKNOWN INDICATION
     Dosage: 3 UNITS DAILY
     Route: 048
  2. SIMESTAT [Concomitant]
     Indication: PRODUCT USED FOR UNKNOWN INDICATION
     Dosage: 1 UNIT DAILY
     Route: 048
  3. NOVORAPID [Concomitant]
     Indication: PRODUCT USED FOR UNKNOWN INDICATION
     Route: 058
  4. TORADIUR [Concomitant]
     Indication: PRODUCT USED FOR UNKNOWN INDICATION
  5. CALCITRIOL [Suspect]
     Indication: HYPERPARATHYROIDISM SECONDARY
     Route: 048
     Dates: start: 20080524, end: 20110524
  6. IRBESARTAN [Concomitant]
     Indication: HYPERTENSION
     Dosage: 1 UNIT DAILY
     Route: 048
  7. BISOPROLOL FUMARATE [Concomitant]
     Indication: PRODUCT USED FOR UNKNOWN INDICATION
  8. DIBASE [Suspect]
     Indication: HYPERPARATHYROIDISM SECONDARY
     Route: 030
     Dates: start: 20090524, end: 20110524

REACTIONS (5)
  - BLOOD CREATININE INCREASED [None]
  - BLOOD CALCIUM INCREASED [None]
  - RENAL FAILURE ACUTE [None]
  - HYPERCALCAEMIA [None]
  - HYPERNATRAEMIA [None]
